FAERS Safety Report 9240601 (Version 1)
Quarter: 2013Q1

REPORT INFORMATION
  Report Type: Spontaneous
  Country: US (occurrence: None)
  Receive Date: 20121120
  Receipt Date: 20121120
  Transmission Date: 20140127
  Serious: No
  Sender: FDA-Public Use
  Company Number: 1000038417

PATIENT
  Age: 37 Year
  Sex: Female

DRUGS (10)
  1. VIIBRYD [Suspect]
     Indication: DEPRESSION
     Route: 048
     Dates: start: 20120803, end: 20120809
  2. VIIBRYD [Suspect]
     Indication: ANXIETY
     Route: 048
     Dates: start: 20120803, end: 20120809
  3. VIIBRYD [Suspect]
     Indication: DEPRESSION
     Route: 048
     Dates: start: 20120817, end: 20120820
  4. VIIBRYD [Suspect]
     Indication: ANXIETY
     Route: 048
     Dates: start: 20120817, end: 20120820
  5. XANAX (ALPRAZOLAM) (ALPRAZOLAM) [Concomitant]
  6. VALIUM (DIAZEPAM) (DIAZEPAM) [Concomitant]
  7. PERCOCET (OXYCODONE, ACETAMINOPHEN) (OXYCODONE, ACETAMINOPHEN) [Concomitant]
  8. NAPROXEN (NAPROXEN) (NAPROXEN) [Concomitant]
  9. FLEXERIL (CYCLOBENZAPRINE) (CYCLOBENZAPRINE) [Concomitant]
  10. ATENOLOL (ATENOLOL) (ATENOLOL) [Concomitant]

REACTIONS (1)
  - Headache [None]
